FAERS Safety Report 14344536 (Version 1)
Quarter: 2018Q1

REPORT INFORMATION
  Report Type: Spontaneous
  Country: US (occurrence: US)
  Receive Date: 20180102
  Receipt Date: 20180102
  Transmission Date: 20180509
  Serious: Yes (Other)
  Sender: FDA-Public Use
  Company Number: US-PURDUE PHARMA-USA-2017-0141207

PATIENT
  Sex: Female

DRUGS (2)
  1. MORPHINE SULFATE (SIMILAR TO NDA 19-516) [Suspect]
     Active Substance: MORPHINE SULFATE
     Indication: COMPLEX REGIONAL PAIN SYNDROME
     Route: 048
  2. PERCOCET                           /00446701/ [Suspect]
     Active Substance: ACETAMINOPHEN\OXYCODONE HYDROCHLORIDE\OXYCODONE TEREPHTHALATE
     Indication: COMPLEX REGIONAL PAIN SYNDROME
     Route: 048

REACTIONS (8)
  - Drug dependence [Unknown]
  - Depression [Unknown]
  - Hyperhidrosis [Unknown]
  - Migraine [Unknown]
  - Mobility decreased [Unknown]
  - Vomiting [Unknown]
  - Pain [Unknown]
  - Tremor [Unknown]
